FAERS Safety Report 16741437 (Version 1)
Quarter: 2019Q3

REPORT INFORMATION
  Report Type: Spontaneous
  Country: US (occurrence: US)
  Receive Date: 20190826
  Receipt Date: 20190826
  Transmission Date: 20191005
  Serious: Yes (Other)
  Sender: FDA-Public Use
  Company Number: US-PFIZER INC-2019256578

PATIENT
  Age: 63 Year
  Sex: Male
  Weight: 70 kg

DRUGS (5)
  1. WARFARIN [Concomitant]
     Active Substance: WARFARIN
     Indication: DEEP VEIN THROMBOSIS
     Dosage: 2.5 MG, UNK [FOUR DAYS A WEEK]
     Dates: start: 20190706
  2. VFEND [Suspect]
     Active Substance: VORICONAZOLE
     Indication: ASPERGILLUS INFECTION
     Dosage: 250 MG, 2X/DAY
  3. VFEND [Suspect]
     Active Substance: VORICONAZOLE
     Dosage: 250 MG, 2X/DAY
     Route: 048
     Dates: start: 20190528
  4. TACROLIMUS. [Concomitant]
     Active Substance: TACROLIMUS
     Indication: HEART TRANSPLANT
     Dosage: 1 MG, 2X/DAY (EVERY 12 HOURS)
     Dates: start: 20190120
  5. WARFARIN [Concomitant]
     Active Substance: WARFARIN
     Dosage: 5 MG, UNK [THREE DAYS A WEEK]
     Dates: start: 20190706

REACTIONS (1)
  - Transplant rejection [Unknown]
